FAERS Safety Report 6392776-1 (Version None)
Quarter: 2009Q4

REPORT INFORMATION
  Report Type: 
  Country: None (occurrence: None)
  Receive Date: 20091007
  Receipt Date: 20090814
  Transmission Date: 20100525
  Serious: No
  Sender: FDA-Public Use
  Company Number: US-ALLERGAN-0911356US

PATIENT
  Age: 64 Year
  Sex: Female

DRUGS (6)
  1. LATISSE [Suspect]
     Indication: GROWTH OF EYELASHES
     Dosage: 1 GTT, QPM
     Dates: start: 20090507
  2. LATISSE [Suspect]
     Dosage: UNK
     Dates: start: 20090709
  3. ACUPRIL                            /00810601/ [Concomitant]
  4. HYDROCHLOROTHIAZIDE [Concomitant]
  5. ASPIRIN [Concomitant]
  6. VITAMINS [Concomitant]

REACTIONS (1)
  - EYELASH DISCOLOURATION [None]
